FAERS Safety Report 22200618 (Version 1)
Quarter: 2023Q2

REPORT INFORMATION
  Report Type: Spontaneous
  Country: FR (occurrence: FR)
  Receive Date: 20230412
  Receipt Date: 20230412
  Transmission Date: 20230721
  Serious: Yes (Hospitalization, Other)
  Sender: FDA-Public Use
  Company Number: None

PATIENT

DRUGS (2)
  1. ADVIL [Suspect]
     Active Substance: IBUPROFEN
     Indication: Ear pain
     Dosage: UNK (3 TABLETS MINIMUM)
     Route: 048
     Dates: start: 20230304, end: 20230313
  2. ADVIL [Suspect]
     Active Substance: IBUPROFEN
     Indication: Odynophagia
     Dosage: 3 DF (3 TABLETS)
     Route: 048
     Dates: start: 20230321, end: 20230323

REACTIONS (2)
  - Mastoiditis [Recovering/Resolving]
  - Meningitis streptococcal [Recovering/Resolving]

NARRATIVE: CASE EVENT DATE: 20230323
